FAERS Safety Report 17460863 (Version 1)
Quarter: 2020Q1

REPORT INFORMATION
  Report Type: Spontaneous
  Country: US (occurrence: US)
  Receive Date: 20200213
  Receipt Date: 20200213
  Transmission Date: 20200409
  Serious: Yes (Hospitalization)
  Sender: FDA-Public Use
  Company Number: None

PATIENT
  Age: 72 Year
  Sex: Male
  Weight: 108.86 kg

DRUGS (7)
  1. DILTIAZEM. [Suspect]
     Active Substance: DILTIAZEM
     Indication: CARDIAC OPERATION
     Route: 048
     Dates: start: 20171226, end: 20190527
  2. DILTIAZEM. [Suspect]
     Active Substance: DILTIAZEM
     Indication: VASCULAR OPERATION
     Route: 048
     Dates: start: 20171226, end: 20190527
  3. DILTIAZEM. [Suspect]
     Active Substance: DILTIAZEM
     Indication: ANGINA PECTORIS
     Route: 048
     Dates: start: 20171226, end: 20190527
  4. METOPROLOL (METOPROLOL (SUCCINATE 50MG TAB SA) [Suspect]
     Active Substance: METOPROLOL SUCCINATE
     Route: 048
     Dates: start: 20190515, end: 20190527
  5. DILTIAZEM. [Suspect]
     Active Substance: DILTIAZEM
     Indication: CARDIAC OPERATION
  6. DILTIAZEM. [Suspect]
     Active Substance: DILTIAZEM
     Indication: VASCULAR OPERATION
  7. DILTIAZEM. [Suspect]
     Active Substance: DILTIAZEM
     Indication: ANGINA PECTORIS

REACTIONS (5)
  - Hyperhidrosis [None]
  - Dyspnoea [None]
  - Syncope [None]
  - Dizziness [None]
  - Bradycardia [None]

NARRATIVE: CASE EVENT DATE: 20190527
